FAERS Safety Report 23185806 (Version 3)
Quarter: 2023Q4

REPORT INFORMATION
  Report Type: Report from Study
  Country: US (occurrence: US)
  Receive Date: 20231115
  Receipt Date: 20231211
  Transmission Date: 20240109
  Serious: Yes (Other)
  Sender: FDA-Public Use
  Company Number: US-EXELIXIS-CABO-23070333

PATIENT
  Sex: Male

DRUGS (10)
  1. CABOMETYX [Suspect]
     Active Substance: CABOZANTINIB S-MALATE
     Indication: Thyroid cancer
     Dosage: 40 MG, QD
     Dates: start: 20230928
  2. CABOMETYX [Suspect]
     Active Substance: CABOZANTINIB S-MALATE
     Dosage: 40 MG, QD
  3. LENVIMA [Suspect]
     Active Substance: LENVATINIB
     Indication: Thyroid cancer
  4. CALCIUM [Concomitant]
     Active Substance: CALCIUM
  5. LISINOPRIL [Concomitant]
     Active Substance: LISINOPRIL
  6. VITAMINS [Concomitant]
     Active Substance: VITAMINS
  7. PRAVASTATIN [Concomitant]
     Active Substance: PRAVASTATIN
  8. MIRALAX [Concomitant]
     Active Substance: POLYETHYLENE GLYCOL 3350
  9. OMEPRAZOLE [Concomitant]
     Active Substance: OMEPRAZOLE
  10. LIDOCAINE [Concomitant]
     Active Substance: LIDOCAINE

REACTIONS (8)
  - Neuropathy peripheral [Not Recovered/Not Resolved]
  - Bone lesion [Unknown]
  - Blood pressure increased [Recovering/Resolving]
  - Constipation [Recovering/Resolving]
  - COVID-19 [Recovered/Resolved]
  - Poor peripheral circulation [Not Recovered/Not Resolved]
  - Skin exfoliation [Not Recovered/Not Resolved]
  - Blood glucose increased [Recovered/Resolved]
